FAERS Safety Report 13641927 (Version 1)
Quarter: 2017Q2

REPORT INFORMATION
  Report Type: Spontaneous
  Country: US (occurrence: US)
  Receive Date: 20170609
  Receipt Date: 20170609
  Transmission Date: 20170830
  Serious: Yes (Hospitalization)
  Sender: FDA-Public Use
  Company Number: None

PATIENT
  Age: 70 Year
  Sex: Male
  Weight: 76.1 kg

DRUGS (2)
  1. WARFARIN [Suspect]
     Active Substance: WARFARIN
     Route: 048
     Dates: start: 20170411, end: 20170420
  2. HEPARIN [Suspect]
     Active Substance: HEPARIN SODIUM
     Indication: CARDIAC VENTRICULAR THROMBOSIS
     Dates: start: 20170411, end: 20170421

REACTIONS (4)
  - Haemorrhagic stroke [None]
  - International normalised ratio decreased [None]
  - Basal ganglia stroke [None]
  - Drug dose omission [None]

NARRATIVE: CASE EVENT DATE: 20170421
